FAERS Safety Report 5620029-5 (Version None)
Quarter: 2008Q1

REPORT INFORMATION
  Report Type: 
  Country: None (occurrence: None)
  Receive Date: 20080208
  Receipt Date: 20080131
  Transmission Date: 20080703
  Serious: Yes (Hospitalization, Other)
  Sender: FDA-Public Use
  Company Number: KR-ELI_LILLY_AND_COMPANY-KR200801003811

PATIENT
  Age: 54 Year
  Sex: Male

DRUGS (3)
  1. OLANZAPINE [Suspect]
     Indication: SCHIZOPHRENIA
     Dosage: 15 MG, DAILY (1/D)
     Route: 048
     Dates: start: 20080103, end: 20080111
  2. OLANZAPINE [Suspect]
     Route: 048
     Dates: start: 20080101
  3. LORAZEPAM [Concomitant]
     Indication: ANXIOLYTIC THERAPY
     Dosage: 1 MG, 2/D
     Route: 048
     Dates: start: 20080103, end: 20080111

REACTIONS (1)
  - MYOCARDIAL INFARCTION [None]
